FAERS Safety Report 18325039 (Version 8)
Quarter: 2021Q3

REPORT INFORMATION
  Report Type: Spontaneous
  Country: US (occurrence: US)
  Receive Date: 20200929
  Receipt Date: 20210916
  Transmission Date: 20211014
  Serious: Yes (Other)
  Sender: FDA-Public Use
  Company Number: US-PFIZER INC-2019546744

PATIENT
  Age: 77 Year
  Sex: Female
  Weight: 80.74 kg

DRUGS (4)
  1. TOVIAZ [Suspect]
     Active Substance: FESOTERODINE FUMARATE
     Indication: HYPERTONIC BLADDER
     Dosage: 4 MG, 1X/DAY (AT NIGHT TIME)
  2. TOVIAZ [Suspect]
     Active Substance: FESOTERODINE FUMARATE
     Indication: ATROPHIC VULVOVAGINITIS
  3. TOVIAZ [Suspect]
     Active Substance: FESOTERODINE FUMARATE
     Indication: URGE INCONTINENCE
     Dosage: 4 MG, 2X/DAY (ONE 4 MG AT NIGHT TIME AND ONE 4 MG IN THE MORNING)
     Route: 048
  4. TOVIAZ [Suspect]
     Active Substance: FESOTERODINE FUMARATE
     Indication: DYSURIA
     Dosage: 4 MG, 2X/DAY
     Route: 048

REACTIONS (6)
  - Off label use [Unknown]
  - Blindness unilateral [Unknown]
  - Cerebrovascular accident [Unknown]
  - Foot fracture [Unknown]
  - Weight increased [Unknown]
  - Chronic obstructive pulmonary disease [Unknown]

NARRATIVE: CASE EVENT DATE: 2020
